FAERS Safety Report 5310293-4 (Version None)
Quarter: 2007Q2

REPORT INFORMATION
  Report Type: 
  Country: None (occurrence: None)
  Receive Date: 20070427
  Receipt Date: 20070417
  Transmission Date: 20071010
  Serious: Yes (Death, Life-Threatening, Hospitalization)
  Sender: FDA-Public Use
  Company Number: JP-SANOFI-SYNTHELABO-A01200609318

PATIENT
  Sex: Male
  Weight: 52 kg

DRUGS (10)
  1. GASTER D [Suspect]
     Indication: GASTROINTESTINAL HAEMORRHAGE
     Route: 048
     Dates: start: 20061003, end: 20061026
  2. LIPITOR [Suspect]
     Indication: HYPERLIPIDAEMIA
     Route: 048
     Dates: start: 20060930, end: 20061026
  3. RENIVACE [Suspect]
     Indication: HYPERTENSION
     Route: 048
     Dates: start: 20060927, end: 20061025
  4. ARTIST [Concomitant]
     Indication: CARDIAC FAILURE CONGESTIVE
     Route: 048
     Dates: start: 20061003
  5. ASPIRIN [Suspect]
     Indication: CORONARY ARTERIAL STENT INSERTION
     Route: 048
     Dates: start: 20060927, end: 20061025
  6. ASPIRIN [Suspect]
     Indication: MYOCARDIAL INFARCTION
     Route: 048
     Dates: start: 20060927, end: 20061025
  7. LUPRAC [Concomitant]
     Indication: CARDIAC FAILURE CONGESTIVE
     Route: 048
     Dates: start: 20061004
  8. PLAVIX [Suspect]
     Indication: CORONARY ARTERIAL STENT INSERTION
     Route: 048
     Dates: start: 20060927, end: 20061029
  9. PLAVIX [Suspect]
     Indication: MYOCARDIAL INFARCTION
     Route: 048
     Dates: start: 20060927, end: 20061029
  10. SIGMART [Concomitant]
     Indication: MYOCARDIAL ISCHAEMIA
     Dosage: 5 MG AFTER EVERY MEAL
     Route: 048
     Dates: start: 20060927

REACTIONS (5)
  - CARDIO-RESPIRATORY ARREST [None]
  - DISEASE RECURRENCE [None]
  - MYOCARDIAL INFARCTION [None]
  - STEVENS-JOHNSON SYNDROME [None]
  - THROMBOSIS IN DEVICE [None]
